FAERS Safety Report 19415221 (Version 2)
Quarter: 2021Q2

REPORT INFORMATION
  Report Type: Report from Study
  Country: CN (occurrence: CN)
  Receive Date: 20210615
  Receipt Date: 20210625
  Transmission Date: 20210717
  Serious: Yes (Hospitalization)
  Sender: FDA-Public Use
  Company Number: CN-ROCHE-2845010

PATIENT
  Age: 72 Year
  Sex: Female
  Weight: 65 kg

DRUGS (6)
  1. BLINDED PYROTINIB MALEATE/PLACEBO [Suspect]
     Active Substance: PYROTINIB MALEATE
     Indication: BREAST CANCER METASTATIC
     Dosage: MOST RECENT DOSE: 20/MAY/2021
     Route: 048
     Dates: start: 20210430, end: 20210519
  2. BLINDED DOCETAXEL [Suspect]
     Active Substance: DOCETAXEL
     Indication: BREAST CANCER METASTATIC
     Route: 042
     Dates: start: 20210430, end: 20210430
  3. LEVAMLODIPINE BESYLATE [Concomitant]
     Active Substance: LEVAMLODIPINE BESYLATE
     Indication: HYPERTENSION
     Route: 048
     Dates: start: 20210419
  4. OXYCODONE HYDROCHLORIDE. [Concomitant]
     Active Substance: OXYCODONE HYDROCHLORIDE
     Indication: PAIN
     Route: 048
     Dates: start: 20210416
  5. AMLODIPINE BESYLATE. [Concomitant]
     Active Substance: AMLODIPINE BESYLATE
     Indication: HYPERTENSION
     Route: 048
     Dates: start: 20210419
  6. BLINDED TRASTUZUMAB [Suspect]
     Active Substance: TRASTUZUMAB
     Indication: BREAST CANCER METASTATIC
     Dosage: IVGTT
     Route: 042
     Dates: start: 20210430

REACTIONS (2)
  - Respiratory failure [Recovering/Resolving]
  - Intestinal obstruction [Recovered/Resolved]

NARRATIVE: CASE EVENT DATE: 20210521
